FAERS Safety Report 5706016-7 (Version None)
Quarter: 2008Q2

REPORT INFORMATION
  Report Type: 
  Country: None (occurrence: None)
  Receive Date: 20080411
  Receipt Date: 20080327
  Transmission Date: 20081010
  Serious: Yes (Hospitalization, Other)
  Sender: FDA-Public Use
  Company Number: TRP_01042_2008

PATIENT
  Sex: Female
  Weight: 48.0813 kg

DRUGS (6)
  1. RIBASPHERE [Suspect]
     Indication: HEPATITIS C
     Dosage: 800 MG QD ORAL
     Route: 048
     Dates: start: 20070914, end: 20080110
  2. PEG-INTRON/PEGINERFERON ALFA 2B/SCHERING-PLOUGH [Suspect]
     Indication: HEPATITIS C
     Dosage: 64 ?G 1X/WEEK SUBCUTANEOUS
     Route: 058
     Dates: start: 20070913, end: 20080110
  3. FUROSEMIDE [Concomitant]
  4. TOPIRAMATE [Concomitant]
  5. CULTURELLE [Concomitant]
  6. ACIDOPHILUS [Concomitant]

REACTIONS (22)
  - ALPHA HAEMOLYTIC STREPTOCOCCAL INFECTION [None]
  - ANAEMIA [None]
  - BLOOD GLUCOSE INCREASED [None]
  - BLOOD PHOSPHORUS DECREASED [None]
  - BRAIN OEDEMA [None]
  - CAROTID ARTERY STENOSIS [None]
  - CEREBRAL ARTERY EMBOLISM [None]
  - CEREBRAL ARTERY THROMBOSIS [None]
  - CHILLS [None]
  - CULTURE URINE POSITIVE [None]
  - DEEP VEIN THROMBOSIS [None]
  - DYSPHAGIA [None]
  - DYSPNOEA [None]
  - HEMIANOPIA HOMONYMOUS [None]
  - ISCHAEMIC CEREBRAL INFARCTION [None]
  - MITRAL VALVE INCOMPETENCE [None]
  - NON-CARDIAC CHEST PAIN [None]
  - PAIN [None]
  - PAROSMIA [None]
  - PYREXIA [None]
  - URGE INCONTINENCE [None]
  - WHITE BLOOD CELL COUNT DECREASED [None]
